FAERS Safety Report 4561478-6 (Version None)
Quarter: 2005Q1

REPORT INFORMATION
  Report Type: 
  Country: None (occurrence: None)
  Receive Date: 20050121
  Receipt Date: 20050104
  Transmission Date: 20050727
  Serious: Yes (Other)
  Sender: FDA-Public Use
  Company Number: USA050187327

PATIENT
  Age: 49 Year
  Sex: Female

DRUGS (6)
  1. CYMBALTA [Suspect]
     Indication: MAJOR DEPRESSION
     Dosage: 60 MG
  2. LAMICTAL [Concomitant]
  3. PROTONIX [Concomitant]
  4. ALLEGRA [Concomitant]
  5. FLUTICASONE PROPIONATE W/SALMETEROL XINAFOATE [Concomitant]
  6. ALBUTEROL [Concomitant]

REACTIONS (3)
  - COLD SWEAT [None]
  - FEAR [None]
  - LOSS OF CONSCIOUSNESS [None]
